FAERS Safety Report 20554540 (Version 1)
Quarter: 2022Q1

REPORT INFORMATION
  Report Type: Spontaneous
  Country: US (occurrence: US)
  Receive Date: 20220304
  Receipt Date: 20220304
  Transmission Date: 20220423
  Serious: Yes (Other)
  Sender: FDA-Public Use
  Company Number: US-ANIPHARMA-2022-US-002935

PATIENT
  Age: 15 Year
  Sex: Male
  Weight: 63.5 kg

DRUGS (3)
  1. ERYTHROMYCIN ETHYLSUCCINATE [Suspect]
     Active Substance: ERYTHROMYCIN ETHYLSUCCINATE
     Indication: Impaired gastric emptying
     Dosage: 5 ML 3 TIMES DAILY
     Route: 048
     Dates: start: 202111
  2. PANTOPRAZOLE [Concomitant]
     Active Substance: PANTOPRAZOLE
  3. ZOFRAN [Concomitant]
     Active Substance: ONDANSETRON HYDROCHLORIDE
     Dosage: USED AS NEEDED

REACTIONS (5)
  - Abdominal pain [Not Recovered/Not Resolved]
  - Vomiting [Recovered/Resolved]
  - Swelling [Not Recovered/Not Resolved]
  - Rash [Recovered/Resolved]
  - Superior mesenteric artery syndrome [Not Recovered/Not Resolved]

NARRATIVE: CASE EVENT DATE: 20220130
